FAERS Safety Report 8489632-1 (Version None)
Quarter: 2012Q3

REPORT INFORMATION
  Report Type: 
  Country: None (occurrence: None)
  Receive Date: 20120705
  Receipt Date: 20120626
  Transmission Date: 20120928
  Serious: Yes (Hospitalization)
  Sender: FDA-Public Use
  Company Number: US-US-EMD SERONO, INC.-7130227

PATIENT
  Sex: Female

DRUGS (2)
  1. AMBIEN [Concomitant]
     Indication: PRODUCT USED FOR UNKNOWN INDICATION
  2. REBIF [Suspect]
     Indication: MULTIPLE SCLEROSIS
     Route: 058
     Dates: start: 20080625

REACTIONS (9)
  - TIBIA FRACTURE [None]
  - NEURALGIA [None]
  - MUSCULAR WEAKNESS [None]
  - FEMUR FRACTURE [None]
  - BURSITIS [None]
  - ROAD TRAFFIC ACCIDENT [None]
  - FATIGUE [None]
  - ROTATOR CUFF SYNDROME [None]
  - FEELING ABNORMAL [None]
